FAERS Safety Report 14128634 (Version 1)
Quarter: 2017Q4

REPORT INFORMATION
  Report Type: Spontaneous
  Country: US (occurrence: US)
  Receive Date: 20171026
  Receipt Date: 20171026
  Transmission Date: 20180321
  Serious: No
  Sender: FDA-Public Use
  Company Number: US-GALDERMA-US16007673

PATIENT
  Age: 65 Year
  Sex: Female

DRUGS (7)
  1. UNSPECIFIED MAKE UP [Concomitant]
     Active Substance: COSMETICS
     Indication: THERAPEUTIC SKIN CARE TOPICAL
     Route: 061
  2. UNSPECIFIED ANTIDEPRESSANT [Concomitant]
     Indication: DEPRESSION
     Route: 048
  3. DHS CONDITIONER RINSE [Concomitant]
     Indication: THERAPEUTIC SKIN CARE TOPICAL
     Route: 061
  4. CLOBEX [Suspect]
     Active Substance: CLOBETASOL PROPIONATE
     Indication: PRURITUS
     Route: 061
     Dates: start: 20161103, end: 20161105
  5. OLAY FACIAL REMOVER [Concomitant]
     Indication: THERAPEUTIC SKIN CARE TOPICAL
     Route: 061
  6. NEXIUM [Concomitant]
     Active Substance: ESOMEPRAZOLE MAGNESIUM
     Indication: BARRETT^S OESOPHAGUS
     Route: 048
  7. DHS SHAMPOO [Concomitant]
     Indication: THERAPEUTIC SKIN CARE TOPICAL
     Route: 061

REACTIONS (3)
  - Drug ineffective for unapproved indication [Unknown]
  - Product quality issue [Not Recovered/Not Resolved]
  - Intentional product misuse [Not Recovered/Not Resolved]

NARRATIVE: CASE EVENT DATE: 20161103
